FAERS Safety Report 8009665-9 (Version None)
Quarter: 2011Q4

REPORT INFORMATION
  Report Type: 
  Country: None (occurrence: None)
  Receive Date: 20111228
  Receipt Date: 20111219
  Transmission Date: 20120403
  Serious: No
  Sender: FDA-Public Use
  Company Number: US-BIOGENIDEC-2011BI021111

PATIENT
  Age: 50 Year
  Sex: Female

DRUGS (1)
  1. TYSABRI [Suspect]
     Indication: MULTIPLE SCLEROSIS
     Route: 042
     Dates: start: 20080101, end: 20100505

REACTIONS (4)
  - MOBILITY DECREASED [None]
  - TYPE 2 DIABETES MELLITUS [None]
  - MUSCULOSKELETAL DISORDER [None]
  - RHEUMATOID ARTHRITIS [None]
